FAERS Safety Report 13057878 (Version 3)
Quarter: 2017Q1

REPORT INFORMATION
  Report Type: Spontaneous
  Country: FR (occurrence: FR)
  Receive Date: 20161223
  Receipt Date: 20170327
  Transmission Date: 20170428
  Serious: Yes (Hospitalization)
  Sender: FDA-Public Use
  Company Number: FR-PFIZER INC-2016585952

PATIENT
  Age: 35 Year
  Sex: Male

DRUGS (5)
  1. LYRICA [Suspect]
     Active Substance: PREGABALIN
     Dosage: UNK
     Route: 045
  2. RIVOTRIL [Suspect]
     Active Substance: CLONAZEPAM
     Dosage: HIGH DOSE
     Route: 048
     Dates: start: 20161122
  3. SALBUTAMOL [Concomitant]
     Active Substance: ALBUTEROL
     Dosage: UNK
     Dates: start: 20161122
  4. PARACETAMOL [Suspect]
     Active Substance: ACETAMINOPHEN
     Indication: CHEST PAIN
     Dosage: HIGH DOSE
     Route: 048
     Dates: start: 20161122
  5. LYRICA [Suspect]
     Active Substance: PREGABALIN
     Dosage: 300 MG, SINGLE
     Route: 045
     Dates: start: 20161122, end: 20161122

REACTIONS (6)
  - Product use issue [Unknown]
  - Intentional product misuse [Recovered/Resolved]
  - Drug dependence [Unknown]
  - Atrioventricular block second degree [Recovered/Resolved]
  - Suicidal ideation [Recovered/Resolved]
  - Emotional distress [Recovered/Resolved]

NARRATIVE: CASE EVENT DATE: 20161123
